FAERS Safety Report 17397538 (Version 1)
Quarter: 2020Q1

REPORT INFORMATION
  Report Type: Spontaneous
  Country: DE (occurrence: DE)
  Receive Date: 20200210
  Receipt Date: 20200210
  Transmission Date: 20200409
  Serious: Yes (Other)
  Sender: FDA-Public Use
  Company Number: DE-US-PROVELL PHARMACEUTICALS LLC-9143958

PATIENT
  Age: 73 Year
  Sex: Female

DRUGS (1)
  1. EUTHYROX NF [Suspect]
     Active Substance: LEVOTHYROXINE SODIUM
     Indication: THYROID DISORDER

REACTIONS (7)
  - Sleep disorder [Unknown]
  - Chest discomfort [Unknown]
  - Tinnitus [Unknown]
  - Restlessness [Unknown]
  - Muscle spasms [Unknown]
  - Tremor [Unknown]
  - Headache [Unknown]
